FAERS Safety Report 25196452 (Version 1)
Quarter: 2025Q2

REPORT INFORMATION
  Report Type: Spontaneous
  Country: US (occurrence: US)
  Receive Date: 20250415
  Receipt Date: 20250415
  Transmission Date: 20250716
  Serious: No
  Sender: TEVA
  Company Number: US-TEVA-VS-3316180

PATIENT
  Age: 34 Year
  Sex: Female

DRUGS (1)
  1. UZEDY [Suspect]
     Active Substance: RISPERIDONE
     Indication: Product used for unknown indication
     Dosage: 100 MG INJECTED UNDER THE SKIN ONCE MONTHLY
     Route: 058
     Dates: start: 202501

REACTIONS (2)
  - Injection site pain [Unknown]
  - Injection site scab [Unknown]

NARRATIVE: CASE EVENT DATE: 20250101
